FAERS Safety Report 17887817 (Version 3)
Quarter: 2020Q3

REPORT INFORMATION
  Report Type: Other
  Country: US (occurrence: US)
  Receive Date: 20200611
  Receipt Date: 20200814
  Transmission Date: 20201103
  Serious: Yes (Other)
  Sender: FDA-Public Use
  Company Number: US-ROCHE-2616682

PATIENT
  Age: 53 Year
  Sex: Male
  Weight: 74.91 kg

DRUGS (1)
  1. OCREVUS [Suspect]
     Active Substance: OCRELIZUMAB
     Indication: RELAPSING-REMITTING MULTIPLE SCLEROSIS
     Dosage: YES
     Route: 042
     Dates: start: 20190613

REACTIONS (2)
  - Multiple sclerosis relapse [Unknown]
  - B-lymphocyte count decreased [Unknown]

NARRATIVE: CASE EVENT DATE: 20200101
